FAERS Safety Report 11880256 (Version 2)
Quarter: 2016Q1

REPORT INFORMATION
  Report Type: Spontaneous
  Country: US (occurrence: US)
  Receive Date: 20151230
  Receipt Date: 20160122
  Transmission Date: 20160526
  Serious: Yes (Other)
  Sender: FDA-Public Use
  Company Number: US-GLAXOSMITHKLINE-US2015183256

PATIENT
  Age: 77 Year
  Sex: Female

DRUGS (8)
  1. ADVAIR DISKUS [Suspect]
     Active Substance: FLUTICASONE PROPIONATE\SALMETEROL XINAFOATE
     Indication: EMPHYSEMA
     Dosage: 1 PUFF(S), BID
     Dates: start: 1992
  2. SPIRIVA [Concomitant]
     Active Substance: TIOTROPIUM BROMIDE MONOHYDRATE
  3. CLARITIN [Concomitant]
     Active Substance: LORATADINE
  4. FLEXERIL [Concomitant]
     Active Substance: CYCLOBENZAPRINE HYDROCHLORIDE
  5. CLOBETASOL [Concomitant]
     Active Substance: CLOBETASOL
  6. ENALAPRIL [Concomitant]
     Active Substance: ENALAPRIL
  7. ADVAIR DISKUS [Suspect]
     Active Substance: FLUTICASONE PROPIONATE\SALMETEROL XINAFOATE
     Indication: CHRONIC OBSTRUCTIVE PULMONARY DISEASE
     Dosage: 1 PUFF(S), QD
     Route: 055
  8. COZAAR [Concomitant]
     Active Substance: LOSARTAN POTASSIUM

REACTIONS (18)
  - Underdose [Unknown]
  - Feeling drunk [Recovered/Resolved]
  - Bone pain [Not Recovered/Not Resolved]
  - Neoplasm malignant [Unknown]
  - Malaise [Recovered/Resolved]
  - Multiple allergies [Recovered/Resolved]
  - Performance status decreased [Recovered/Resolved]
  - Rhinorrhoea [Not Recovered/Not Resolved]
  - Lung operation [Recovered/Resolved]
  - Sinusitis [Recovered/Resolved]
  - Pulmonary mass [Recovered/Resolved]
  - Fatigue [Recovered/Resolved]
  - Feeling abnormal [Recovered/Resolved]
  - Cataract operation [Recovered/Resolved]
  - Herpes virus infection [Recovered/Resolved with Sequelae]
  - Prescribed underdose [Unknown]
  - Mental impairment [Recovered/Resolved]
  - Thinking abnormal [Recovered/Resolved]

NARRATIVE: CASE EVENT DATE: 2005
